FAERS Safety Report 7657417-1 (Version None)
Quarter: 2011Q3

REPORT INFORMATION
  Report Type: 
  Country: None (occurrence: None)
  Receive Date: 20110804
  Receipt Date: 20110520
  Transmission Date: 20111222
  Serious: No
  Sender: FDA-Public Use
  Company Number: US-ASTRAZENECA-2011SE31027

PATIENT
  Age: 70 Year
  Sex: Male
  Weight: 69.8 kg

DRUGS (1)
  1. VANDETANIB [Suspect]
     Indication: THYROID CANCER
     Route: 048
     Dates: start: 20110505

REACTIONS (2)
  - BLOOD PRESSURE INCREASED [None]
  - ELECTROCARDIOGRAM QT PROLONGED [None]
